FAERS Safety Report 7420812-X (Version None)
Quarter: 2011Q2

REPORT INFORMATION
  Report Type: 
  Country: None (occurrence: None)
  Receive Date: 20110418
  Receipt Date: 20110412
  Transmission Date: 20111010
  Serious: Yes (Other)
  Sender: FDA-Public Use
  Company Number: A0920622A

PATIENT
  Age: 32 Year
  Sex: Female
  Weight: 79.5 kg

DRUGS (3)
  1. ALLI [Suspect]
     Route: 048
  2. CITALOPRAM HYDROBROMIDE [Concomitant]
  3. MULTI-VITAMIN [Concomitant]

REACTIONS (1)
  - RECTAL HAEMORRHAGE [None]
